FAERS Safety Report 9670921 (Version 1)
Quarter: 2013Q4

REPORT INFORMATION
  Report Type: Spontaneous
  Country: US (occurrence: US)
  Receive Date: 20131106
  Receipt Date: 20131106
  Transmission Date: 20140711
  Serious: No
  Sender: FDA-Public Use
  Company Number: US-009507513-1311USA001730

PATIENT
  Sex: 0

DRUGS (1)
  1. ZIOPTAN [Suspect]
     Dosage: UNK
     Dates: start: 2013

REACTIONS (3)
  - Incorrect product storage [Unknown]
  - Poor quality drug administered [Unknown]
  - No adverse event [Unknown]
